FAERS Safety Report 19737315 (Version 1)
Quarter: 2021Q3

REPORT INFORMATION
  Report Type: Spontaneous
  Country: CN (occurrence: CN)
  Receive Date: 20210823
  Receipt Date: 20210823
  Transmission Date: 20211014
  Serious: Yes (Hospitalization)
  Sender: FDA-Public Use
  Company Number: CN-ELI_LILLY_AND_COMPANY-CN202108005386

PATIENT
  Age: 40 Year
  Sex: Male
  Weight: 57 kg

DRUGS (2)
  1. HUMALOG MIX75/25 [Suspect]
     Active Substance: INSULIN LISPRO
     Indication: TYPE 2 DIABETES MELLITUS
     Dosage: 8 U, BID (EACH MORNING AND NIGHT)
     Route: 058
     Dates: start: 202103
  2. INSULIN GLARGINE [Concomitant]
     Active Substance: INSULIN GLARGINE
     Indication: TYPE 2 DIABETES MELLITUS
     Dosage: 8 U, DAILY (NIGHT)
     Route: 058
     Dates: start: 202103

REACTIONS (2)
  - Weight decreased [Unknown]
  - Blood glucose increased [Unknown]
